FAERS Safety Report 4431106-9 (Version None)
Quarter: 2004Q3

REPORT INFORMATION
  Report Type: 
  Country: None (occurrence: None)
  Receive Date: 20040817
  Receipt Date: 20040803
  Transmission Date: 20050211
  Serious: Yes (Death)
  Sender: FDA-Public Use
  Company Number: DEU-2004-0000843

PATIENT
  Age: 24 Year
  Sex: Male

DRUGS (5)
  1. MORPHINE SULFATE [Suspect]
     Dosage: INTRAVENOUS
     Route: 042
     Dates: start: 20040310
  2. OXAZEPAM [Suspect]
     Dosage: ORAL
     Route: 048
     Dates: start: 20040310
  3. NORDAZEPAM (NORDAZEPAM) [Suspect]
  4. CANNABIS (CANNABIS) [Concomitant]
  5. ALCOHOL [Concomitant]

REACTIONS (5)
  - ALCOHOL USE [None]
  - BRAIN OEDEMA [None]
  - DIAPHRAGMATIC PARALYSIS [None]
  - POLYSUBSTANCE ABUSE [None]
  - THERAPEUTIC AGENT TOXICITY [None]
